FAERS Safety Report 6431737-0 (Version None)
Quarter: 2009Q4

REPORT INFORMATION
  Report Type: 
  Country: None (occurrence: None)
  Receive Date: 20091104
  Receipt Date: 20091026
  Transmission Date: 20100525
  Serious: Yes (Hospitalization)
  Sender: FDA-Public Use
  Company Number: 234465K09USA

PATIENT
  Age: 63 Year
  Sex: Female

DRUGS (10)
  1. REBIF [Suspect]
     Indication: MULTIPLE SCLEROSIS
     Dosage: 44 MCG, 3 IN 1 WEEKS, SUBCUTANEOUS, 22 MCG, 3 IN 1 WEEKS
     Route: 058
     Dates: start: 20090120, end: 20090501
  2. REBIF [Suspect]
     Indication: MULTIPLE SCLEROSIS
     Dosage: 44 MCG, 3 IN 1 WEEKS, SUBCUTANEOUS, 22 MCG, 3 IN 1 WEEKS
     Route: 058
     Dates: start: 20090726, end: 20090801
  3. ZETIA [Concomitant]
  4. ESTRADIOL [Concomitant]
  5. CLONAZEPAM [Concomitant]
  6. RELPAX [Concomitant]
  7. DARVOCET [Concomitant]
  8. UNSPECIFIED EYE DROPS (TETRYZOLINE HYDROCHLORIDE) [Concomitant]
  9. IBUPROFEN [Concomitant]
  10. CIPRO [Concomitant]

REACTIONS (4)
  - BACK PAIN [None]
  - HAEMANGIOMA [None]
  - MUSCLE SPASMS [None]
  - SPINAL DISORDER [None]
